FAERS Safety Report 5658042-4 (Version None)
Quarter: 2008Q1

REPORT INFORMATION
  Report Type: 
  Country: None (occurrence: None)
  Receive Date: 20080310
  Receipt Date: 20070605
  Transmission Date: 20080703
  Serious: No
  Sender: FDA-Public Use
  Company Number: US-BAYER-200614975BCC

PATIENT
  Age: 31 Year
  Sex: Male
  Weight: 193 kg

DRUGS (7)
  1. ALEVE [Suspect]
     Indication: MIGRAINE
     Dosage: TOTAL DAILY DOSE: 880 MG  UNIT DOSE: 220 MG
     Route: 048
     Dates: start: 20061212
  2. DOXYCYCLINE [Concomitant]
  3. LIPITOR [Concomitant]
  4. LEXAPRO [Concomitant]
  5. METOPROLOL TARTRATE [Concomitant]
  6. PLAVIX [Concomitant]
  7. PROVENTIL [Concomitant]

REACTIONS (1)
  - DRUG SCREEN POSITIVE [None]
